FAERS Safety Report 11821355 (Version 3)
Quarter: 2016Q3

REPORT INFORMATION
  Report Type: Spontaneous
  Country: US (occurrence: US)
  Receive Date: 20151210
  Receipt Date: 20160728
  Transmission Date: 20161109
  Serious: Yes (Other)
  Sender: FDA-Public Use
  Company Number: US-JNJFOC-20150619199

PATIENT
  Age: 51 Year
  Sex: Female

DRUGS (4)
  1. ALLOPURINOL. [Concomitant]
     Active Substance: ALLOPURINOL
  2. IMBRUVICA [Suspect]
     Active Substance: IBRUTINIB
     Indication: CHRONIC LYMPHOCYTIC LEUKAEMIA
     Route: 048
     Dates: start: 20150205
  3. LEVOFLOXACIN. [Concomitant]
     Active Substance: LEVOFLOXACIN
  4. VALACYCLOVIR [Concomitant]
     Active Substance: VALACYCLOVIR HYDROCHLORIDE

REACTIONS (26)
  - Herpes virus infection [Unknown]
  - Thrombophlebitis superficial [Recovering/Resolving]
  - Laceration [Unknown]
  - Red blood cell count decreased [None]
  - Bronchitis [None]
  - Varicose vein [None]
  - Skin papilloma [Unknown]
  - Skin fissures [None]
  - Weight decreased [Unknown]
  - Blood pressure increased [None]
  - Somnolence [None]
  - Injury [Unknown]
  - Pain [Unknown]
  - Rash [Unknown]
  - Haemoglobin decreased [None]
  - Memory impairment [None]
  - Nail disorder [None]
  - Blood lactate dehydrogenase increased [Unknown]
  - Impaired healing [Unknown]
  - White blood cell count increased [Recovering/Resolving]
  - Lymphadenopathy [Unknown]
  - Platelet count decreased [None]
  - Skin irritation [Unknown]
  - Drug dose omission [None]
  - Diarrhoea [None]
  - Haematocrit decreased [None]

NARRATIVE: CASE EVENT DATE: 2015
